FAERS Safety Report 8007107-0 (Version None)
Quarter: 2011Q4

REPORT INFORMATION
  Report Type: 
  Country: None (occurrence: None)
  Receive Date: 20111227
  Receipt Date: 20111221
  Transmission Date: 20120403
  Serious: Yes (Other)
  Sender: FDA-Public Use
  Company Number: AU-PFIZER INC-2011310523

PATIENT
  Sex: Male

DRUGS (2)
  1. LATANOPROST [Suspect]
     Indication: GLAUCOMA
     Dosage: UNK
     Dates: start: 20100501, end: 20100601
  2. XALATAN [Suspect]
     Indication: GLAUCOMA

REACTIONS (2)
  - INTRAOCULAR PRESSURE INCREASED [None]
  - DEPRESSION [None]
